FAERS Safety Report 25484685 (Version 1)
Quarter: 2025Q2

REPORT INFORMATION
  Report Type: Spontaneous
  Country: US (occurrence: None)
  Receive Date: 20250627
  Receipt Date: 20250627
  Transmission Date: 20250717
  Serious: Yes (Life-Threatening, Hospitalization, Disabling, Other)
  Sender: FDA-CTU
  Company Number: None

PATIENT
  Age: 38 Year
  Sex: Male
  Weight: 56.25 kg

DRUGS (5)
  1. TRILEPTAL [Suspect]
     Active Substance: OXCARBAZEPINE
     Indication: Bipolar disorder
  2. ABILIFY [Suspect]
     Active Substance: ARIPIPRAZOLE
  3. ALBUTEROL [Concomitant]
     Active Substance: ALBUTEROL
  4. ASPIRIN [Concomitant]
     Active Substance: ASPIRIN
  5. CANNABIS EDIBLE [Concomitant]

REACTIONS (5)
  - Blood sodium decreased [None]
  - Dizziness [None]
  - Vision blurred [None]
  - Headache [None]
  - Blood pressure decreased [None]

NARRATIVE: CASE EVENT DATE: 20250101
